FAERS Safety Report 21359279 (Version 7)
Quarter: 2022Q4

REPORT INFORMATION
  Report Type: Report from Study
  Country: RU (occurrence: RU)
  Receive Date: 20220921
  Receipt Date: 20221209
  Transmission Date: 20230113
  Serious: Yes (Hospitalization)
  Sender: FDA-Public Use
  Company Number: RU-NOVARTISPH-NVSC2022RU211214

PATIENT
  Age: 77 Year
  Sex: Female
  Weight: 70 kg

DRUGS (17)
  1. RIBOCICLIB [Suspect]
     Active Substance: RIBOCICLIB
     Indication: Breast cancer
     Dosage: 400 MG, QD
     Route: 048
     Dates: start: 20190723
  2. RIBOCICLIB [Suspect]
     Active Substance: RIBOCICLIB
     Dosage: 200 MG, QD
     Route: 048
     Dates: start: 20200723, end: 20220713
  3. LETROZOLE [Suspect]
     Active Substance: LETROZOLE
     Indication: Breast cancer
     Dosage: 2.5 MG, QD
     Route: 048
     Dates: start: 20190723
  4. LISINOPRIL [Concomitant]
     Active Substance: LISINOPRIL
     Indication: Hypertension
     Dosage: 5 MG, QD
     Route: 048
     Dates: start: 20151005
  5. ZOLEDRONIC ACID [Concomitant]
     Active Substance: ZOLEDRONIC ACID
     Indication: Osteoporosis
     Dosage: 4 MG, ONCE EVERY THREE MONTHS
     Route: 042
     Dates: start: 20201220
  6. CALCEMIN [Concomitant]
     Active Substance: BORON\PREVITAMIN D3\ZINC
     Indication: Osteoporosis
     Dosage: 1 TAB, QD
     Route: 048
     Dates: start: 20210413
  7. VITAMIN D [Concomitant]
     Active Substance: VITAMIN D NOS
     Indication: Osteoporosis
     Dosage: 10 MG, QD
     Route: 048
     Dates: start: 20210413
  8. MEMANTINE [Concomitant]
     Active Substance: MEMANTINE
     Indication: Encephalopathy
     Dosage: 20 MG, QD
     Route: 048
     Dates: start: 20211224
  9. CLONAZEPAM [Concomitant]
     Active Substance: CLONAZEPAM
     Indication: Encephalopathy
     Dosage: 0.5 MG, QD
     Route: 048
     Dates: start: 20211224
  10. ALBUTEROL [Concomitant]
     Active Substance: ALBUTEROL
     Indication: Chronic obstructive pulmonary disease
     Dosage: UNK
     Route: 065
     Dates: start: 20220714
  11. BUDESONIDE [Concomitant]
     Active Substance: BUDESONIDE
     Indication: Chronic obstructive pulmonary disease
     Dosage: UNK
     Route: 065
     Dates: start: 20220714
  12. FORMOTEROL [Concomitant]
     Active Substance: FORMOTEROL
     Indication: Chronic obstructive pulmonary disease
     Dosage: UNK
     Route: 065
     Dates: start: 20220714
  13. MAGNESIUM ASPARTATE\POTASSIUM ASPARTATE [Concomitant]
     Active Substance: MAGNESIUM ASPARTATE\POTASSIUM ASPARTATE
     Indication: Leukopenia
     Dosage: UNK
     Route: 065
     Dates: start: 20220721
  14. MAGNESIUM ASPARTATE\POTASSIUM ASPARTATE [Concomitant]
     Active Substance: MAGNESIUM ASPARTATE\POTASSIUM ASPARTATE
     Indication: Blood magnesium decreased
  15. THYMINE [Concomitant]
     Active Substance: THYMINE
     Indication: Leukopenia
     Dosage: UNK
     Route: 065
     Dates: start: 20220721
  16. THYMINE [Concomitant]
     Active Substance: THYMINE
     Indication: Blood magnesium decreased
  17. KETONAL [Concomitant]
     Indication: Osteoarthritis
     Dosage: UNK
     Route: 065
     Dates: start: 20220720

REACTIONS (1)
  - Chronic obstructive pulmonary disease [Recovered/Resolved with Sequelae]

NARRATIVE: CASE EVENT DATE: 20220919
